FAERS Safety Report 9095182 (Version 1)
Quarter: 2013Q1

REPORT INFORMATION
  Report Type: Spontaneous
  Country: GB (occurrence: None)
  Receive Date: 20130122
  Receipt Date: 20130122
  Transmission Date: 20140127
  Serious: Yes (Life-Threatening, Hospitalization)
  Sender: FDA-Public Use
  Company Number: 1558507

PATIENT
  Age: 35 Year
  Sex: Female
  Weight: 88.3 kg

DRUGS (7)
  1. CARBOPLATIN [Suspect]
     Indication: BREAST CANCER
     Dosage: (NOT OTHERWISE SPECIFIED)
     Route: 042
     Dates: start: 20101013
  2. TRASTUZUMAB [Suspect]
     Indication: BREAST CANCER
     Dosage: (NOT OTHERWISE SPECIFIED)
     Route: 042
     Dates: start: 20101013
  3. BEVACIZUMAB [Suspect]
     Indication: BREAST CANCER
     Dosage: (NOT OTHERWISE SPECIFIED)
     Route: 042
     Dates: start: 20101013
  4. DOCETAXEL [Suspect]
     Indication: BREAST CANCER
     Dosage: (NOT OTHERWISE SPECIFIED)
     Route: 042
     Dates: start: 20101013
  5. LEVOTHYROXINE SODIUM [Concomitant]
  6. (NEXIUM? /01479302/) [Concomitant]
  7. PERCOCET [Concomitant]

REACTIONS (3)
  - Caecitis [None]
  - Febrile neutropenia [None]
  - Haematotoxicity [None]
